FAERS Safety Report 10033726 (Version 2)
Quarter: 2014Q2

REPORT INFORMATION
  Report Type: Spontaneous
  Country: US (occurrence: US)
  Receive Date: 20140325
  Receipt Date: 20140423
  Transmission Date: 20141212
  Serious: No
  Sender: FDA-Public Use
  Company Number: US-BIOGENIDEC-2014BI024296

PATIENT
  Age: 54 Year
  Sex: Female
  Weight: 56 kg

DRUGS (7)
  1. TECFIDERA [Suspect]
     Indication: MULTIPLE SCLEROSIS
     Route: 048
     Dates: start: 20140223
  2. TECFIDERA [Suspect]
     Indication: MULTIPLE SCLEROSIS
     Route: 048
     Dates: start: 20140329, end: 20140329
  3. CENTRUM MULTIVITAMIN [Concomitant]
  4. OXYBUTYNIN [Concomitant]
  5. BLACK COHOSH [Concomitant]
  6. SOY FORMULA CAPLET [Concomitant]
  7. WOMENS MULTIVITAMIN [Concomitant]

REACTIONS (6)
  - Urticaria [Unknown]
  - Prescribed underdose [Recovered/Resolved]
  - Flushing [Unknown]
  - Vomiting [Unknown]
  - Abdominal discomfort [Unknown]
  - Generalised erythema [Unknown]
